FAERS Safety Report 25512688 (Version 1)
Quarter: 2025Q3

REPORT INFORMATION
  Report Type: Spontaneous
  Country: US (occurrence: US)
  Receive Date: 20250703
  Receipt Date: 20250703
  Transmission Date: 20251020
  Serious: No
  Sender: RADIUS PHARM
  Company Number: US-RADIUS HEALTH INC.-2024US008289

PATIENT
  Age: 53 Year
  Sex: Female

DRUGS (1)
  1. TYMLOS [Suspect]
     Active Substance: ABALOPARATIDE
     Indication: Product used for unknown indication
     Route: 065
     Dates: start: 2024

REACTIONS (5)
  - Heart rate increased [Not Recovered/Not Resolved]
  - Bone pain [Recovering/Resolving]
  - Pain in extremity [Unknown]
  - Chest discomfort [Recovered/Resolved]
  - Product dose omission issue [Unknown]
